FAERS Safety Report 8078905-2 (Version None)
Quarter: 2012Q1

REPORT INFORMATION
  Report Type: 
  Country: None (occurrence: None)
  Receive Date: 20120124
  Receipt Date: 20120109
  Transmission Date: 20120608
  Serious: Yes (Death)
  Sender: FDA-Public Use
  Company Number: JPI-P-003116

PATIENT
  Age: 38 Year
  Sex: Female

DRUGS (4)
  1. BENZODIAZEPINES [Suspect]
     Indication: PRODUCT USED FOR UNKNOWN INDICATION
     Dates: end: 20080212
  2. XYREM [Suspect]
     Indication: PRODUCT USED FOR UNKNOWN INDICATION
     Dosage: 18 GM (9 GM, 2 IN 1 D), ORAL
     Route: 048
     Dates: end: 20080212
  3. OTHER UNSPECIFIED DRUGS, MEDICAMENTS, AND BIOLOGICAL SUBSTANCES [Suspect]
     Indication: PRODUCT USED FOR UNKNOWN INDICATION
     Dates: end: 20080212
  4. OPIOIDS [Suspect]
     Indication: PRODUCT USED FOR UNKNOWN INDICATION
     Dates: end: 20080212

REACTIONS (1)
  - ACCIDENTAL POISONING [None]
